FAERS Safety Report 7243497-4 (Version None)
Quarter: 2011Q1

REPORT INFORMATION
  Report Type: 
  Country: None (occurrence: None)
  Receive Date: 20110119
  Receipt Date: 20110119
  Transmission Date: 20110831
  Serious: Yes (Other)
  Sender: FDA-Public Use
  Company Number: None

PATIENT
  Age: 27 Year
  Sex: Male
  Weight: 117.9352 kg

DRUGS (1)
  1. NAPROXEN [Suspect]
     Indication: LIGAMENT RUPTURE
     Dosage: 500MG TWICE DAILY PO
     Route: 048
     Dates: start: 20110113, end: 20110115

REACTIONS (3)
  - DIARRHOEA [None]
  - HAEMATOCHEZIA [None]
  - ABDOMINAL PAIN UPPER [None]
